FAERS Safety Report 9979529 (Version 2)
Quarter: 2014Q1

REPORT INFORMATION
  Report Type: Report from Study
  Country: US (occurrence: US)
  Receive Date: 20140306
  Receipt Date: 20140306
  Transmission Date: 20141002
  Serious: No
  Sender: FDA-Public Use
  Company Number: US-ABBVIE-13P-163-1166840-00

PATIENT
  Age: 40 Year
  Sex: Male

DRUGS (3)
  1. HUMIRA [Suspect]
     Indication: CROHN^S DISEASE
     Route: 058
     Dates: start: 20131017, end: 20131017
  2. HUMIRA [Suspect]
     Route: 058
     Dates: start: 20131031, end: 20131031
  3. HUMIRA [Suspect]

REACTIONS (3)
  - Injection site bruising [Unknown]
  - Injection site bruising [Unknown]
  - Injection site bruising [Unknown]
